FAERS Safety Report 10577705 (Version 2)
Quarter: 2014Q4

REPORT INFORMATION
  Report Type: Report from Study
  Country: US (occurrence: US)
  Receive Date: 20141111
  Receipt Date: 20141111
  Transmission Date: 20150529
  Serious: Yes (Hospitalization)
  Sender: FDA-Public Use
  Company Number: US-B.I. PHARMACEUTICALS,INC./RIDGEFIELD-2014-BI-40726BI

PATIENT
  Age: 81 Year
  Sex: Female
  Weight: 65.45 kg

DRUGS (6)
  1. GILOTRIF [Suspect]
     Active Substance: AFATINIB
     Dosage: 20 MG
     Route: 065
     Dates: start: 20140929, end: 20141010
  2. GILOTRIF [Suspect]
     Active Substance: AFATINIB
     Dosage: 30 MG
     Route: 048
     Dates: start: 20140903
  3. GILOTRIF [Suspect]
     Active Substance: AFATINIB
     Dosage: 40 MG
     Route: 065
     Dates: start: 20140805, end: 20140827
  4. GILOTRIF [Suspect]
     Active Substance: AFATINIB
     Dosage: 30 MG
     Route: 065
     Dates: start: 20140827, end: 20140929
  5. GILOTRIF [Suspect]
     Active Substance: AFATINIB
     Indication: NON-SMALL CELL LUNG CANCER
     Dosage: 40 MG
     Route: 048
     Dates: start: 20140725
  6. GILOTRIF [Suspect]
     Active Substance: AFATINIB
     Dosage: 20 MG
     Route: 048
     Dates: start: 20140725

REACTIONS (7)
  - Nausea [Recovered/Resolved]
  - Renal disorder [Unknown]
  - Vomiting [Recovered/Resolved]
  - Diarrhoea [Unknown]
  - Rash pruritic [Recovered/Resolved]
  - Dehydration [Recovered/Resolved]
  - Loss of consciousness [Recovered/Resolved]

NARRATIVE: CASE EVENT DATE: 201408
